FAERS Safety Report 22175101 (Version 1)
Quarter: 2023Q2

REPORT INFORMATION
  Report Type: Spontaneous
  Country: US (occurrence: US)
  Receive Date: 20230405
  Receipt Date: 20230405
  Transmission Date: 20230721
  Serious: Yes (Hospitalization)
  Sender: FDA-Public Use
  Company Number: US-STRIDES ARCOLAB LIMITED-2022SP003036

PATIENT
  Age: 12 Year
  Sex: Female

DRUGS (2)
  1. AMOXICILLIN [Suspect]
     Active Substance: AMOXICILLIN
     Indication: Scarlet fever
     Dosage: UNK,DURING INITIAL TREATMENT FOR SCARLET FEVER
     Route: 065
  2. AMOXICILLIN [Suspect]
     Active Substance: AMOXICILLIN
     Indication: Allergy test
     Dosage: UNK, AMOXICILLIN ALLERGY EVALUATION
     Route: 048

REACTIONS (3)
  - Type III immune complex mediated reaction [Recovered/Resolved]
  - Anaphylactoid reaction [Recovered/Resolved]
  - Type IV hypersensitivity reaction [Recovered/Resolved]
